FAERS Safety Report 7897905-6 (Version None)
Quarter: 2011Q4

REPORT INFORMATION
  Report Type: 
  Country: None (occurrence: None)
  Receive Date: 20111107
  Receipt Date: 20111026
  Transmission Date: 20120403
  Serious: Yes (Death, Other)
  Sender: FDA-Public Use
  Company Number: JP-CELGENEUS-087-21880-11030665

PATIENT
  Sex: Male

DRUGS (9)
  1. REVLIMID [Suspect]
     Dosage: 5 MILLIGRAM
     Route: 048
     Dates: start: 20110125, end: 20110807
  2. REVLIMID [Suspect]
     Dosage: 10 MILLIGRAM
     Route: 048
     Dates: start: 20110106, end: 20110108
  3. METHYCOBAL [Concomitant]
     Dosage: 500 MICROGRAM
     Route: 048
     Dates: start: 20101227, end: 20110420
  4. REVLIMID [Suspect]
     Dosage: 5 MILLIGRAM
     Route: 048
     Dates: start: 20110110, end: 20110123
  5. JUVELA NICOTINATE [Concomitant]
     Dosage: 300 MILLIGRAM
     Route: 048
     Dates: start: 20101227, end: 20110420
  6. REVLIMID [Suspect]
     Dosage: 10 MILLIGRAM
     Route: 048
     Dates: start: 20110124, end: 20110124
  7. PYDOXAL [Concomitant]
     Dosage: 60 MILLIGRAM
     Route: 048
     Dates: start: 20101227, end: 20110420
  8. REVLIMID [Suspect]
     Indication: MULTIPLE MYELOMA
     Dosage: 10 MILLIGRAM
     Route: 048
     Dates: start: 20101227, end: 20101228
  9. OLOPATADINE HCL [Concomitant]
     Indication: PROPHYLAXIS
     Dosage: 10 MILLIGRAM
     Route: 048
     Dates: start: 20110110, end: 20110807

REACTIONS (5)
  - C-REACTIVE PROTEIN INCREASED [None]
  - GENERALISED OEDEMA [None]
  - PLATELET COUNT DECREASED [None]
  - RASH [None]
  - PYREXIA [None]
